FAERS Safety Report 12264378 (Version 1)
Quarter: 2016Q2

REPORT INFORMATION
  Report Type: Spontaneous
  Country: US (occurrence: US)
  Receive Date: 20160413
  Receipt Date: 20160413
  Transmission Date: 20160815
  Serious: Yes (Other)
  Sender: FDA-Public Use
  Company Number: US-BAYER-2016-069762

PATIENT
  Age: 18 Year
  Sex: Female

DRUGS (1)
  1. SKYLA [Suspect]
     Active Substance: LEVONORGESTREL
     Dosage: UNK
     Dates: start: 20160401

REACTIONS (5)
  - Post procedural haemorrhage [None]
  - Nasal discomfort [None]
  - Procedural pain [None]
  - Ear pain [None]
  - Oropharyngeal discomfort [None]
